FAERS Safety Report 17782273 (Version 11)
Quarter: 2022Q4

REPORT INFORMATION
  Report Type: Report from Study
  Country: US (occurrence: US)
  Receive Date: 20200513
  Receipt Date: 20221229
  Transmission Date: 20230113
  Serious: No
  Sender: FDA-Public Use
  Company Number: US-ACADIA PHARMACEUTICALS INC.-ACA-2020-PIM-000918

PATIENT
  Age: 87 Year
  Sex: Male
  Weight: 57 kg

DRUGS (14)
  1. NUPLAZID [Suspect]
     Active Substance: PIMAVANSERIN TARTRATE
     Indication: Parkinson^s disease psychosis
     Dosage: 34 MILLIGRAM, QD
     Route: 048
     Dates: start: 20200316, end: 2020
  2. NUPLAZID [Suspect]
     Active Substance: PIMAVANSERIN TARTRATE
     Indication: Hallucination
     Dosage: 34 MILLIGRAM, QD
     Route: 048
     Dates: start: 202008, end: 20210713
  3. NUPLAZID [Suspect]
     Active Substance: PIMAVANSERIN TARTRATE
     Indication: Delusion
     Dosage: 34 MILLIGRAM, QD
     Route: 048
  4. NUPLAZID [Suspect]
     Active Substance: PIMAVANSERIN TARTRATE
     Dosage: 34 MILLIGRAM, QD
     Route: 048
  5. CARBIDOPA\LEVODOPA [Suspect]
     Active Substance: CARBIDOPA\LEVODOPA
     Dosage: UNK
     Route: 065
  6. ATENOLOL [Concomitant]
     Active Substance: ATENOLOL
  7. FLOMAX [Concomitant]
     Active Substance: TAMSULOSIN HYDROCHLORIDE
     Indication: Prostatic disorder
  8. NORVASC [Concomitant]
     Active Substance: AMLODIPINE BESYLATE
  9. LEXAPRO [Concomitant]
     Active Substance: ESCITALOPRAM OXALATE
     Dosage: UNK
  10. CRESTOR [Concomitant]
     Active Substance: ROSUVASTATIN CALCIUM
  11. KLONOPIN [Concomitant]
     Active Substance: CLONAZEPAM
  12. LEVODOPA [Concomitant]
     Active Substance: LEVODOPA
  13. AMLODIPINE [Concomitant]
     Active Substance: AMLODIPINE BESYLATE
  14. ONDANSETRON [Concomitant]
     Active Substance: ONDANSETRON
     Dosage: 4 MILLIGRAM

REACTIONS (37)
  - Abnormal behaviour [Not Recovered/Not Resolved]
  - Asthenia [Unknown]
  - Nightmare [Unknown]
  - Ill-defined disorder [Unknown]
  - Rapid eye movement sleep behaviour disorder [Not Recovered/Not Resolved]
  - Abnormal behaviour [Unknown]
  - Freezing phenomenon [Not Recovered/Not Resolved]
  - Muscular weakness [Not Recovered/Not Resolved]
  - Dysstasia [Not Recovered/Not Resolved]
  - Abnormal dreams [Unknown]
  - Abdominal discomfort [Not Recovered/Not Resolved]
  - Fatigue [Not Recovered/Not Resolved]
  - Headache [Not Recovered/Not Resolved]
  - Dizziness [Not Recovered/Not Resolved]
  - Dizziness [Not Recovered/Not Resolved]
  - Abnormal behaviour [Unknown]
  - Therapeutic response unexpected [Not Recovered/Not Resolved]
  - Abnormal dreams [Not Recovered/Not Resolved]
  - Eye contusion [Unknown]
  - Contusion [Unknown]
  - Skin laceration [Unknown]
  - Epistaxis [Unknown]
  - Product dose omission issue [Unknown]
  - Renal disorder [Not Recovered/Not Resolved]
  - Feeling hot [Not Recovered/Not Resolved]
  - Flushing [Not Recovered/Not Resolved]
  - Back pain [Not Recovered/Not Resolved]
  - Pain in extremity [Not Recovered/Not Resolved]
  - Chest pain [Not Recovered/Not Resolved]
  - Somnolence [Not Recovered/Not Resolved]
  - Hallucination, visual [Recovering/Resolving]
  - Drug ineffective [Unknown]
  - Hallucination, visual [Unknown]
  - Hallucination, visual [Unknown]
  - Hallucination [Not Recovered/Not Resolved]
  - Nausea [Not Recovered/Not Resolved]
  - Fall [Not Recovered/Not Resolved]

NARRATIVE: CASE EVENT DATE: 20200301
